FAERS Safety Report 25899486 (Version 2)
Quarter: 2025Q4

REPORT INFORMATION
  Report Type: Spontaneous
  Country: JP (occurrence: JP)
  Receive Date: 20251009
  Receipt Date: 20251110
  Transmission Date: 20260118
  Serious: No
  Sender: NOVARTIS
  Company Number: JP-002147023-NVSJ2025JP009919

PATIENT
  Age: 86 Year
  Sex: Female

DRUGS (1)
  1. ENTRESTO [Suspect]
     Active Substance: SACUBITRIL\VALSARTAN
     Indication: Hypertension
     Dosage: 200 MG
     Route: 048
     Dates: start: 20240902

REACTIONS (1)
  - Contraindicated product administered [Recovered/Resolved]
